FAERS Safety Report 6655923-X (Version None)
Quarter: 2010Q1

REPORT INFORMATION
  Report Type: 
  Country: None (occurrence: None)
  Receive Date: 20100329
  Receipt Date: 20100318
  Transmission Date: 20100710
  Serious: Yes (Other)
  Sender: FDA-Public Use
  Company Number: PHEH2010US03210

PATIENT
  Age: 77 Year
  Sex: Female

DRUGS (5)
  1. ZOMETA [Suspect]
     Indication: METASTASES TO BONE
     Dosage: 4 MG EVERY FOUR WEEKS
     Route: 042
     Dates: start: 20070201, end: 20090701
  2. ALIMTA [Concomitant]
  3. CARBOPLATIN [Concomitant]
  4. TAXOL [Concomitant]
  5. ANTIBIOTICS [Concomitant]

REACTIONS (3)
  - LOOSE TOOTH [None]
  - OSTEONECROSIS [None]
  - TOOTH LOSS [None]
